FAERS Safety Report 7391356-9 (Version None)
Quarter: 2011Q2

REPORT INFORMATION
  Report Type: 
  Country: None (occurrence: None)
  Receive Date: 20110404
  Receipt Date: 20110325
  Transmission Date: 20111010
  Serious: Yes (Other)
  Sender: FDA-Public Use
  Company Number: JP-SANOFI-AVENTIS-2011SA010323

PATIENT
  Age: 79 Year
  Sex: Female
  Weight: 45.9 kg

DRUGS (3)
  1. ALLEGRA [Suspect]
     Route: 048
     Dates: start: 20110201, end: 20110217
  2. FLUMETHOLON [Concomitant]
     Route: 047
     Dates: start: 20110201
  3. FLUNASE [Concomitant]
     Dosage: 1 SPRAY 4 TIMES A DAY
     Route: 045
     Dates: start: 20110201

REACTIONS (1)
  - ELECTROCARDIOGRAM QT PROLONGED [None]
